FAERS Safety Report 9686554 (Version 2)
Quarter: 2014Q2

REPORT INFORMATION
  Report Type: Spontaneous
  Country: US (occurrence: US)
  Receive Date: 20131113
  Receipt Date: 20140626
  Transmission Date: 20141212
  Serious: No
  Sender: FDA-Public Use
  Company Number: US-BAXTER-2013BAX044415

PATIENT
  Sex: Female

DRUGS (1)
  1. DIANEAL LOW CALCIUM [Suspect]
     Indication: PERITONEAL DIALYSIS
     Route: 033

REACTIONS (6)
  - Weight increased [Recovered/Resolved]
  - Blood pressure fluctuation [Recovered/Resolved]
  - Application site dryness [Recovered/Resolved]
  - Application site pruritus [Recovered/Resolved]
  - Dermatitis contact [Recovered/Resolved]
  - Rash pruritic [Recovering/Resolving]
